FAERS Safety Report 9452449 (Version 1)
Quarter: 2013Q3

REPORT INFORMATION
  Report Type: Spontaneous
  Country: US (occurrence: None)
  Receive Date: 20130808
  Receipt Date: 20130808
  Transmission Date: 20140515
  Serious: Yes (Disabling)
  Sender: FDA-Public Use
  Company Number: None

PATIENT
  Age: 25 Year
  Sex: Female
  Weight: 77.11 kg

DRUGS (2)
  1. HALOBETASOL PROPIONATE [Suspect]
     Indication: ECZEMA
     Dosage: AS NEEDED APPLIED TO A SURFACE, USUALLY THE SKIN
     Dates: start: 20030801, end: 20120511
  2. HALOBETASOL PROPIONATE [Suspect]
     Indication: DERMATITIS ATOPIC
     Dosage: AS NEEDED APPLIED TO A SURFACE, USUALLY THE SKIN
     Dates: start: 20030801, end: 20120511

REACTIONS (17)
  - Hyperaesthesia [None]
  - Eczema [None]
  - Withdrawal syndrome [None]
  - Rebound effect [None]
  - Erythema [None]
  - Pruritus [None]
  - Skin exfoliation [None]
  - Dry skin [None]
  - Blister [None]
  - Rash [None]
  - Fatigue [None]
  - Insomnia [None]
  - Temperature regulation disorder [None]
  - Feeling cold [None]
  - Local swelling [None]
  - Swelling face [None]
  - Perfume sensitivity [None]
